FAERS Safety Report 10833869 (Version 1)
Quarter: 2015Q1

REPORT INFORMATION
  Report Type: Report from Study
  Country: US (occurrence: US)
  Receive Date: 20150219
  Receipt Date: 20150219
  Transmission Date: 20150721
  Serious: No
  Sender: FDA-Public Use
  Company Number: US-ABBVIE-14P-163-1209296-00

PATIENT
  Age: 57 Year
  Sex: Male

DRUGS (6)
  1. HUMIRA [Suspect]
     Active Substance: ADALIMUMAB
     Indication: RHEUMATOID ARTHRITIS
     Dates: start: 20140130
  2. FOLIC ACID. [Concomitant]
     Active Substance: FOLIC ACID
     Indication: RHEUMATOID ARTHRITIS
  3. TRAMADOL [Concomitant]
     Active Substance: TRAMADOL
     Indication: RHEUMATIC DISORDER
  4. HP ADVAN GEL [Concomitant]
     Indication: PROPHYLAXIS
     Route: 050
  5. METHOTREXATE [Concomitant]
     Active Substance: METHOTREXATE
     Indication: RHEUMATOID ARTHRITIS
     Dosage: EVERY SUNDAY
  6. HP ADVAN GEL [Concomitant]
     Indication: RHEUMATOID ARTHRITIS

REACTIONS (4)
  - Musculoskeletal stiffness [Not Recovered/Not Resolved]
  - Sensation of foreign body [Not Recovered/Not Resolved]
  - Myalgia [Not Recovered/Not Resolved]
  - Pain [Not Recovered/Not Resolved]

NARRATIVE: CASE EVENT DATE: 20140130
